FAERS Safety Report 23953818 (Version 1)
Quarter: 2024Q2

REPORT INFORMATION
  Report Type: Spontaneous
  Country: US (occurrence: None)
  Receive Date: 20240609
  Receipt Date: 20240609
  Transmission Date: 20240716
  Serious: No
  Sender: FDA-Public Use
  Company Number: 2024A131692

PATIENT
  Sex: Female

DRUGS (2)
  1. OSIMERTINIB [Suspect]
     Active Substance: OSIMERTINIB
     Route: 048
  2. TEPOTINIB [Concomitant]
     Active Substance: TEPOTINIB

REACTIONS (2)
  - Pyogenic granuloma [Unknown]
  - Paronychia [Unknown]
